FAERS Safety Report 6272837-8 (Version None)
Quarter: 2009Q3

REPORT INFORMATION
  Report Type: 
  Country: None (occurrence: None)
  Receive Date: 20090717
  Receipt Date: 20090708
  Transmission Date: 20100115
  Serious: Yes (Hospitalization)
  Sender: FDA-Public Use
  Company Number: NZ-ASTRAZENECA-2009SE04284

PATIENT
  Age: 25431 Day
  Sex: Female

DRUGS (5)
  1. PRILOSEC [Suspect]
     Route: 048
     Dates: start: 20000823, end: 20000828
  2. CILAZAPRIL [Concomitant]
     Route: 048
     Dates: start: 20000501
  3. LEVOTHYROXINE SODIUM [Concomitant]
     Route: 048
  4. ZOPICLONE [Concomitant]
     Route: 048
  5. BENDROFLUAZIDE [Concomitant]
     Route: 048

REACTIONS (1)
  - INTESTINAL OBSTRUCTION [None]
